FAERS Safety Report 19479672 (Version 9)
Quarter: 2021Q3

REPORT INFORMATION
  Report Type: Report from Study
  Country: ES (occurrence: ES)
  Receive Date: 20210701
  Receipt Date: 20210921
  Transmission Date: 20211014
  Serious: Yes (Hospitalization)
  Sender: FDA-Public Use
  Company Number: ES-ROCHE-2857039

PATIENT
  Age: 82 Year
  Sex: Male
  Weight: 83 kg

DRUGS (40)
  1. PARACETAMOL [Concomitant]
     Active Substance: ACETAMINOPHEN
     Indication: PREMEDICATION
     Route: 048
     Dates: start: 20210526, end: 20210526
  2. PARACETAMOL [Concomitant]
     Active Substance: ACETAMINOPHEN
     Route: 048
     Dates: start: 20210728, end: 20210728
  3. DEXCHLORPHENIRAMINE [Concomitant]
     Active Substance: DEXCHLORPHENIRAMINE
     Route: 042
     Dates: start: 20210728, end: 20210728
  4. NOVORAPID [Concomitant]
     Active Substance: INSULIN ASPART
  5. ALLOPURINOL. [Concomitant]
     Active Substance: ALLOPURINOL
     Dates: start: 20210415
  6. GLOFITAMAB. [Suspect]
     Active Substance: GLOFITAMAB
     Indication: B-CELL LYMPHOMA REFRACTORY
     Dosage: DOSE LAST STUDY DRUG ADMIN PRIOR AE 30 MG?START DATE AND END DATE OF MOST RECENT DOSE OF STUDY DRUG
     Route: 042
     Dates: start: 20210421
  7. PARACETAMOL [Concomitant]
     Active Substance: ACETAMINOPHEN
     Route: 048
     Dates: start: 20210616, end: 20210616
  8. DEXCHLORPHENIRAMINE [Concomitant]
     Active Substance: DEXCHLORPHENIRAMINE
     Indication: PREMEDICATION
     Route: 042
     Dates: start: 20210526, end: 20210526
  9. DEXCHLORPHENIRAMINE [Concomitant]
     Active Substance: DEXCHLORPHENIRAMINE
     Route: 042
     Dates: start: 20210707, end: 20210707
  10. FUROSEMIDE. [Concomitant]
     Active Substance: FUROSEMIDE
  11. PAROXETINE. [Concomitant]
     Active Substance: PAROXETINE
     Indication: DEPRESSION
     Route: 065
  12. DULOXETINE. [Concomitant]
     Active Substance: DULOXETINE
     Indication: NEUROPATHY PERIPHERAL
     Dates: start: 20210721
  13. PARACETAMOL [Concomitant]
     Active Substance: ACETAMINOPHEN
     Route: 048
     Dates: start: 20210707, end: 20210707
  14. DEXCHLORPHENIRAMINE [Concomitant]
     Active Substance: DEXCHLORPHENIRAMINE
     Route: 042
     Dates: start: 20210728, end: 20210728
  15. DEXCHLORPHENIRAMINE [Concomitant]
     Active Substance: DEXCHLORPHENIRAMINE
     Route: 042
     Dates: start: 20210526, end: 20210526
  16. DEXAMETHASONE. [Concomitant]
     Active Substance: DEXAMETHASONE
     Route: 042
     Dates: start: 20210728, end: 20210728
  17. TAMSULOSIN [Concomitant]
     Active Substance: TAMSULOSIN
     Indication: BENIGN PROSTATIC HYPERPLASIA
     Dates: start: 200512
  18. EBASTEL [Concomitant]
     Active Substance: EBASTINE
  19. OMEPRAZOLE. [Concomitant]
     Active Substance: OMEPRAZOLE
     Dates: start: 20210415
  20. DEXAMETHASONE. [Concomitant]
     Active Substance: DEXAMETHASONE
     Route: 042
     Dates: start: 20210616, end: 20210616
  21. PARACETAMOL [Concomitant]
     Active Substance: ACETAMINOPHEN
  22. DEXCHLORPHENIRAMINE [Concomitant]
     Active Substance: DEXCHLORPHENIRAMINE
     Route: 042
     Dates: start: 20210616, end: 20210616
  23. DEXCHLORPHENIRAMINE [Concomitant]
     Active Substance: DEXCHLORPHENIRAMINE
     Route: 042
     Dates: start: 20210707, end: 20210707
  24. DEXAMETHASONE. [Concomitant]
     Active Substance: DEXAMETHASONE
     Route: 042
     Dates: start: 20210707, end: 20210707
  25. ATROVENT [Concomitant]
     Active Substance: IPRATROPIUM BROMIDE
  26. DEXAMETHASONE. [Concomitant]
     Active Substance: DEXAMETHASONE
     Route: 042
     Dates: start: 20210526, end: 20210526
  27. OBINUTUZUMAB. [Suspect]
     Active Substance: OBINUTUZUMAB
     Indication: B-CELL LYMPHOMA REFRACTORY
     Dosage: START AND END DATE OF MOST RECENT DOSE OF STUDY DRUG PRIOR TO AE 14/APR/2021(3:01 PM ? 8:03 PM)?TOTA
     Route: 042
     Dates: start: 20210414
  28. MAGNOGENE [Concomitant]
     Indication: HYPOMAGNESAEMIA
     Dates: start: 20210428, end: 20210526
  29. METFORMIN [Concomitant]
     Active Substance: METFORMIN HYDROCHLORIDE
     Indication: HYPERGLYCAEMIA
     Dates: start: 20210422
  30. SYMBICORT [Concomitant]
     Active Substance: BUDESONIDE\FORMOTEROL FUMARATE DIHYDRATE
  31. COVID?19 VACCINE [Concomitant]
     Dosage: 2ND DOSE MODERNA
     Dates: start: 20210610, end: 20210610
  32. DEXAMETHASONE. [Concomitant]
     Active Substance: DEXAMETHASONE
     Indication: PREMEDICATION
     Route: 042
     Dates: start: 20210728, end: 20210728
  33. POLATUZUMAB VEDOTIN. [Suspect]
     Active Substance: POLATUZUMAB VEDOTIN
     Indication: B-CELL LYMPHOMA REFRACTORY
     Dosage: DOSE LAST STUDY DRUG ADMIN PRIOR SAE 149 MG, TOTAL VOLUME PRIOR SAE 119 ML?START AND END DATE OF MOS
     Route: 042
     Dates: start: 20210415
  34. DEXAMETHASONE. [Concomitant]
     Active Substance: DEXAMETHASONE
     Indication: PREMEDICATION
     Route: 042
     Dates: start: 20210526, end: 20210526
  35. PREGABALIN. [Concomitant]
     Active Substance: PREGABALIN
     Indication: NEUROPATHY PERIPHERAL
     Dates: start: 20210707, end: 20210728
  36. DEXAMETHASONE. [Concomitant]
     Active Substance: DEXAMETHASONE
     Route: 042
     Dates: start: 20210707, end: 20210707
  37. METFORMIN [Concomitant]
     Active Substance: METFORMIN HYDROCHLORIDE
     Indication: TYPE 2 DIABETES MELLITUS
     Dates: start: 20090925
  38. DEXAMETHASONE. [Concomitant]
     Active Substance: DEXAMETHASONE
     Route: 042
     Dates: start: 20210616, end: 20210616
  39. LYRICA [Concomitant]
     Active Substance: PREGABALIN
     Indication: DEPRESSION
  40. VALGANCICLOVIR. [Concomitant]
     Active Substance: VALGANCICLOVIR
     Indication: CYTOMEGALOVIRUS VIRAEMIA
     Dates: start: 20210715

REACTIONS (1)
  - Diarrhoea [Recovered/Resolved]

NARRATIVE: CASE EVENT DATE: 20210618
